FAERS Safety Report 7588624-4 (Version None)
Quarter: 2011Q3

REPORT INFORMATION
  Report Type: 
  Country: None (occurrence: None)
  Receive Date: 20110705
  Receipt Date: 20110630
  Transmission Date: 20111222
  Serious: Yes (Hospitalization)
  Sender: FDA-Public Use
  Company Number: AU-BRISTOL-MYERS SQUIBB COMPANY-15587710

PATIENT
  Age: 58 Year
  Sex: Male
  Weight: 90 kg

DRUGS (5)
  1. METHOTREXATE [Concomitant]
     Indication: RHEUMATOID ARTHRITIS
     Route: 048
     Dates: start: 20080916
  2. PREDNISOLONE [Concomitant]
     Indication: RHEUMATOID ARTHRITIS
     Route: 048
     Dates: start: 20080301
  3. ACTONEL [Concomitant]
     Indication: OSTEOPOROSIS
     Route: 048
  4. ORENCIA [Suspect]
     Indication: RHEUMATOID ARTHRITIS
     Dates: start: 20091021, end: 20110321
  5. HYDROXYCHLOROQUINE SULFATE [Concomitant]
     Dosage: 1DF:200 MS
     Route: 048
     Dates: start: 20090101

REACTIONS (7)
  - HYPOTENSION [None]
  - HEADACHE [None]
  - ASTHENIA [None]
  - DIZZINESS [None]
  - COUGH [None]
  - SLOW RESPONSE TO STIMULI [None]
  - RHEUMATOID ARTHRITIS [None]
